FAERS Safety Report 11247771 (Version 4)
Quarter: 2017Q1

REPORT INFORMATION
  Report Type: Spontaneous
  Country: US (occurrence: US)
  Receive Date: 20150708
  Receipt Date: 20170113
  Transmission Date: 20170428
  Serious: Yes (Other)
  Sender: FDA-Public Use
  Company Number: US-BAYER-2015-367727

PATIENT
  Age: 43 Year
  Sex: Female
  Weight: 61 kg

DRUGS (4)
  1. AVELOX [Suspect]
     Active Substance: MOXIFLOXACIN HYDROCHLORIDE
     Indication: HYPERSENSITIVITY
  2. PREVACID [Concomitant]
     Active Substance: LANSOPRAZOLE
     Dosage: 15 MG, QD
  3. AVELOX [Suspect]
     Active Substance: MOXIFLOXACIN HYDROCHLORIDE
     Indication: NASOPHARYNGITIS
     Dosage: 400 MG, QD
     Dates: start: 20110816
  4. AVELOX [Suspect]
     Active Substance: MOXIFLOXACIN HYDROCHLORIDE
     Indication: COUGH

REACTIONS (29)
  - Economic problem [None]
  - Cough [None]
  - Hypoaesthesia [None]
  - Abdominal discomfort [None]
  - Back pain [None]
  - Upper respiratory tract infection [None]
  - Paraesthesia [None]
  - Pain [None]
  - Quality of life decreased [None]
  - Diarrhoea [None]
  - Rhinitis [None]
  - Neuropathy peripheral [None]
  - Off label use [None]
  - Hypoaesthesia [None]
  - Hypoaesthesia [None]
  - Night sweats [None]
  - Insomnia [None]
  - Chest pain [None]
  - Tachycardia [None]
  - Anxiety [None]
  - Pain in extremity [None]
  - Nasopharyngitis [None]
  - Injury [None]
  - Emotional distress [None]
  - Fear [None]
  - Musculoskeletal pain [None]
  - Constipation [None]
  - Oropharyngeal pain [None]
  - Syncope [None]

NARRATIVE: CASE EVENT DATE: 20111014
